FAERS Safety Report 24849634 (Version 1)
Quarter: 2025Q1

REPORT INFORMATION
  Report Type: Spontaneous
  Country: US (occurrence: None)
  Receive Date: 20250115
  Receipt Date: 20250115
  Transmission Date: 20250409
  Serious: Yes (Life-Threatening, Other)
  Sender: FDA-CTU
  Company Number: None

PATIENT
  Age: 70 Year
  Sex: Female
  Weight: 90 kg

DRUGS (17)
  1. PROLIA [Suspect]
     Active Substance: DENOSUMAB
     Indication: Osteoporosis
     Route: 058
  2. NOVOLOG [Concomitant]
     Active Substance: INSULIN ASPART
  3. KERENDIA [Concomitant]
     Active Substance: FINERENONE
  4. LOVAZA [Concomitant]
     Active Substance: OMEGA-3-ACID ETHYL ESTERS
  5. REPATHA [Concomitant]
     Active Substance: EVOLOCUMAB
  6. FENOFIBRATE [Concomitant]
     Active Substance: FENOFIBRATE
  7. LABETALOL [Concomitant]
     Active Substance: LABETALOL
  8. CANDESARTAN [Concomitant]
     Active Substance: CANDESARTAN
  9. ASPIRIN [Concomitant]
     Active Substance: ASPIRIN
  10. VITAMIN D [Concomitant]
     Active Substance: VITAMIN D NOS
  11. NORTRIPTYLINE [Concomitant]
     Active Substance: NORTRIPTYLINE
  12. OMEPRAZOLE [Concomitant]
     Active Substance: OMEPRAZOLE
  13. SYNTHROID [Concomitant]
     Active Substance: LEVOTHYROXINE SODIUM
  14. LORAZEPAM [Concomitant]
     Active Substance: LORAZEPAM
  15. AZO [Concomitant]
     Active Substance: PHENAZOPYRIDINE HYDROCHLORIDE
  16. TUMS [Concomitant]
     Active Substance: CALCIUM CARBONATE
  17. TYLENOL [Concomitant]
     Active Substance: ACETAMINOPHEN

REACTIONS (20)
  - Lip swelling [None]
  - Dyspnoea [None]
  - Throat irritation [None]
  - Gingival swelling [None]
  - Urinary tract infection [None]
  - Pneumonia klebsiella [None]
  - Back pain [None]
  - Arthralgia [None]
  - Groin pain [None]
  - Pain in extremity [None]
  - Nasal congestion [None]
  - Mental disorder [None]
  - Depression [None]
  - Mood swings [None]
  - Dysgeusia [None]
  - Joint swelling [None]
  - Joint swelling [None]
  - Joint swelling [None]
  - Insomnia [None]
  - Pain [None]

NARRATIVE: CASE EVENT DATE: 20250113
